FAERS Safety Report 7422644-5 (Version None)
Quarter: 2011Q2

REPORT INFORMATION
  Report Type: 
  Country: None (occurrence: None)
  Receive Date: 20110414
  Receipt Date: 20110414
  Transmission Date: 20111010
  Serious: Yes (Hospitalization)
  Sender: FDA-Public Use
  Company Number: None

PATIENT
  Age: 56 Year
  Sex: Male
  Weight: 82 kg

DRUGS (1)
  1. ZOLPIDEM [Suspect]
     Dosage: 5-10 MG HS PO
     Route: 048
     Dates: start: 20101217, end: 20101226

REACTIONS (2)
  - AMNESIA [None]
  - DELIRIUM [None]
